FAERS Safety Report 25006053 (Version 2)
Quarter: 2025Q3

REPORT INFORMATION
  Report Type: Spontaneous
  Country: US (occurrence: US)
  Receive Date: 20250224
  Receipt Date: 20250820
  Transmission Date: 20251021
  Serious: No
  Sender: BLUEPRINT MEDICINES
  Company Number: US-Blueprint Medicines Corporation-2025-AER-00335

PATIENT
  Age: 26 Year
  Sex: Female

DRUGS (1)
  1. AYVAKIT [Suspect]
     Active Substance: AVAPRITINIB
     Indication: Mastocytoma
     Dosage: MORNING
     Route: 065
     Dates: start: 20231229

REACTIONS (10)
  - Eye swelling [Unknown]
  - Swelling face [Unknown]
  - Fatigue [Unknown]
  - Asthenia [Unknown]
  - Dizziness [Unknown]
  - Electrocardiogram T wave abnormal [Unknown]
  - Ehlers-Danlos syndrome [Unknown]
  - Pain in extremity [Unknown]
  - Arthralgia [Unknown]
  - Mobility decreased [Unknown]
